FAERS Safety Report 6283638-9 (Version None)
Quarter: 2009Q3

REPORT INFORMATION
  Report Type: 
  Country: None (occurrence: None)
  Receive Date: 20090724
  Receipt Date: 20090716
  Transmission Date: 20100115
  Serious: Yes (Other)
  Sender: FDA-Public Use
  Company Number: PHHY2008JP19351

PATIENT

DRUGS (1)
  1. COMTAN [Suspect]
     Indication: DRUG EFFECT DECREASED
     Dosage: 2 DF DAILY
     Route: 048

REACTIONS (2)
  - RED BLOOD CELL COUNT INCREASED [None]
  - RED BLOOD CELLS URINE POSITIVE [None]
